FAERS Safety Report 4599417-4 (Version None)
Quarter: 2005Q1

REPORT INFORMATION
  Report Type: 
  Country: None (occurrence: None)
  Receive Date: 20050127
  Receipt Date: 20041115
  Transmission Date: 20050727
  Serious: No
  Sender: FDA-Public Use
  Company Number: USA041081073

PATIENT
  Age: 16 Year
  Sex: Male

DRUGS (1)
  1. STRATTERA [Suspect]
     Indication: ATTENTION DEFICIT/HYPERACTIVITY DISORDER
     Dosage: 40 MG/1 DAY
     Dates: start: 20030901, end: 20041001

REACTIONS (4)
  - AGGRESSION [None]
  - DEPRESSION [None]
  - PERSONALITY CHANGE [None]
  - SUICIDAL IDEATION [None]
